FAERS Safety Report 8936440 (Version 1)
Quarter: 2012Q4

REPORT INFORMATION
  Report Type: Report from Study
  Country: TR (occurrence: TR)
  Receive Date: 20121130
  Receipt Date: 20121130
  Transmission Date: 20130627
  Serious: Yes (Hospitalization)
  Sender: FDA-Public Use
  Company Number: TR-ROCHE-1161999

PATIENT
  Age: 71 Year
  Sex: Male

DRUGS (1)
  1. CAPECITABINE [Suspect]
     Indication: HEPATIC NEOPLASM MALIGNANT
     Dosage: 3+3
     Route: 065
     Dates: start: 20120606, end: 201211

REACTIONS (2)
  - Localised oedema [Not Recovered/Not Resolved]
  - Blood test abnormal [Not Recovered/Not Resolved]
